FAERS Safety Report 8216034-5 (Version None)
Quarter: 2012Q1

REPORT INFORMATION
  Report Type: 
  Country: None (occurrence: None)
  Receive Date: 20120316
  Receipt Date: 20120305
  Transmission Date: 20120608
  Serious: Yes (Other)
  Sender: FDA-Public Use
  Company Number: US-PERRIGO-12US001814

PATIENT
  Sex: Female
  Weight: 81.633 kg

DRUGS (1)
  1. TUSSIN PE CF LIQ 516 [Suspect]
     Indication: COUGH
     Dosage: 30 ML, SINGLE
     Route: 048
     Dates: start: 20120228, end: 20120228

REACTIONS (8)
  - HALLUCINATION [None]
  - DYSARTHRIA [None]
  - HYPERSENSITIVITY [None]
  - ACCIDENTAL OVERDOSE [None]
  - MOVEMENT DISORDER [None]
  - SOMNOLENCE [None]
  - DIZZINESS [None]
  - RESTLESSNESS [None]
